FAERS Safety Report 5658020-5 (Version None)
Quarter: 2008Q1

REPORT INFORMATION
  Report Type: 
  Country: None (occurrence: None)
  Receive Date: 20080306
  Receipt Date: 20080225
  Transmission Date: 20080703
  Serious: Yes (Hospitalization)
  Sender: FDA-Public Use
  Company Number: 231036J08USA

PATIENT
  Age: 60 Year
  Sex: Male

DRUGS (7)
  1. REBIF [Suspect]
     Indication: OFF LABEL USE
     Dosage: 22 MCG, 3 IN 1 WEEKS, SUBCUTANEOUS
     Route: 058
     Dates: start: 20071228, end: 20080206
  2. UNSPECIFIED NON-STEROIDAL ANTIINFLAMMATORY DRUG(NSAID'S) [Suspect]
     Indication: PAIN
     Dates: end: 20080101
  3. SOLU-MEDROL [Concomitant]
  4. BACLOFEN [Concomitant]
  5. VALIUM [Concomitant]
  6. VICODIN [Concomitant]
  7. CELEXA (CITALOPRAM HYDROCBROMIDE) [Concomitant]

REACTIONS (10)
  - ANAEMIA [None]
  - BARRETT'S OESOPHAGUS [None]
  - FAECAL INCONTINENCE [None]
  - GASTROENTERITIS VIRAL [None]
  - GASTROINTESTINAL HAEMORRHAGE [None]
  - MALAISE [None]
  - PNEUMONIA [None]
  - URINARY INCONTINENCE [None]
  - URINARY TRACT INFECTION [None]
  - UROSEPSIS [None]
